FAERS Safety Report 10152757 (Version 1)
Quarter: 2014Q2

REPORT INFORMATION
  Report Type: Spontaneous
  Country: US (occurrence: None)
  Receive Date: 20140502
  Receipt Date: 20140502
  Transmission Date: 20141212
  Serious: No
  Sender: FDA-Public Use
  Company Number: None

PATIENT
  Age: 5 Year
  Sex: Male

DRUGS (2)
  1. BUSULFAN [Suspect]
  2. MELPHALAN [Suspect]

REACTIONS (4)
  - Thrombocytopenia [None]
  - Ascites [None]
  - Gastrointestinal haemorrhage [None]
  - Aspartate aminotransferase increased [None]
